FAERS Safety Report 24183836 (Version 1)
Quarter: 2024Q3

REPORT INFORMATION
  Report Type: Spontaneous
  Country: CN (occurrence: CN)
  Receive Date: 20240807
  Receipt Date: 20240807
  Transmission Date: 20241017
  Serious: Yes (Other)
  Sender: EISAI
  Company Number: CN-Eisai-EC-2024-171378

PATIENT
  Age: 79 Year
  Sex: Male

DRUGS (2)
  1. RABEPRAZOLE [Suspect]
     Active Substance: RABEPRAZOLE
     Indication: Duodenal ulcer
     Route: 048
     Dates: start: 20240715, end: 20240724
  2. TEPRENONE [Suspect]
     Active Substance: TEPRENONE
     Indication: Duodenal ulcer
     Route: 048
     Dates: start: 20240715, end: 20240724

REACTIONS (1)
  - Drug eruption [Recovering/Resolving]

NARRATIVE: CASE EVENT DATE: 20240722
